FAERS Safety Report 5845225-3 (Version None)
Quarter: 2008Q3

REPORT INFORMATION
  Report Type: 
  Country: None (occurrence: None)
  Receive Date: 20080814
  Receipt Date: 20080806
  Transmission Date: 20090109
  Serious: Yes (Hospitalization)
  Sender: FDA-Public Use
  Company Number: B0494568A

PATIENT
  Age: 60 Year
  Sex: Male
  Weight: 79 kg

DRUGS (9)
  1. LAPATINIB [Suspect]
     Indication: HYPOPHARYNGEAL CANCER
     Route: 048
     Dates: start: 20071016, end: 20071119
  2. CISPLATIN [Suspect]
     Indication: HYPOPHARYNGEAL CANCER
     Route: 042
     Dates: start: 20071016, end: 20071112
  3. FLUOROURACIL [Suspect]
     Indication: HYPOPHARYNGEAL CANCER
     Dosage: 7500MG CUMULATIVE DOSE
     Route: 042
     Dates: start: 20071016, end: 20071117
  4. DOCETAXEL [Suspect]
     Indication: HYPOPHARYNGEAL CANCER
     Route: 042
     Dates: start: 20071016, end: 20071112
  5. RADIOTHERAPY [Suspect]
     Indication: HYPOPHARYNGEAL CANCER
  6. CARBOPLATIN [Suspect]
     Indication: HYPOPHARYNGEAL CANCER
  7. COAPROVEL [Concomitant]
     Indication: HYPERTENSION
     Route: 048
     Dates: start: 19970701, end: 20071031
  8. PRAVASTATIN [Concomitant]
     Indication: HYPERTENSION
     Dosage: 10MG PER DAY
     Route: 048
     Dates: start: 19970701
  9. NORMITEN [Concomitant]
     Indication: HYPERTENSION
     Dosage: 5MG PER DAY
     Route: 048
     Dates: start: 19970701

REACTIONS (9)
  - BLOOD CHLORIDE DECREASED [None]
  - BLOOD PHOSPHORUS INCREASED [None]
  - BLOOD SODIUM DECREASED [None]
  - BLOOD UREA DECREASED [None]
  - BLOOD URIC ACID INCREASED [None]
  - C-REACTIVE PROTEIN INCREASED [None]
  - HAEMATOCRIT DECREASED [None]
  - MEAN CELL HAEMOGLOBIN DECREASED [None]
  - RENAL FAILURE [None]
